FAERS Safety Report 7711578-4 (Version None)
Quarter: 2011Q3

REPORT INFORMATION
  Report Type: 
  Country: None (occurrence: None)
  Receive Date: 20110826
  Receipt Date: 20110729
  Transmission Date: 20111222
  Serious: No
  Sender: FDA-Public Use
  Company Number: US-BRISTOL-MYERS SQUIBB COMPANY-15941289

PATIENT
  Sex: Female

DRUGS (1)
  1. ONGLYZA [Suspect]
     Dates: start: 20110101, end: 20110101

REACTIONS (1)
  - ABNORMAL DREAMS [None]
